FAERS Safety Report 9345184 (Version 1)
Quarter: 2013Q2

REPORT INFORMATION
  Report Type: Spontaneous
  Country: US (occurrence: US)
  Receive Date: 20130612
  Receipt Date: 20130612
  Transmission Date: 20140414
  Serious: No
  Sender: FDA-Public Use
  Company Number: US-PFIZER INC-2013176734

PATIENT
  Age: 34 Year
  Sex: Female
  Weight: 121 kg

DRUGS (2)
  1. XANAX [Suspect]
     Indication: GENERALISED ANXIETY DISORDER
     Dosage: UNK
     Route: 048
  2. XANAX [Suspect]
     Dosage: 8 MG, 1X/DAY
     Route: 048

REACTIONS (2)
  - Hepatic steatosis [Unknown]
  - Panic attack [Unknown]
